FAERS Safety Report 8189294-7 (Version None)
Quarter: 2012Q1

REPORT INFORMATION
  Report Type: 
  Country: None (occurrence: None)
  Receive Date: 20120307
  Receipt Date: 20120229
  Transmission Date: 20120608
  Serious: Yes (Hospitalization)
  Sender: FDA-Public Use
  Company Number: US-CELGENEUS-163-21880-12030064

PATIENT
  Sex: Female

DRUGS (1)
  1. REVLIMID [Suspect]
     Indication: MULTIPLE MYELOMA
     Dosage: 15 MILLIGRAM
     Route: 048
     Dates: start: 20120201

REACTIONS (5)
  - HEPATOMEGALY [None]
  - HEPATIC ENZYME INCREASED [None]
  - PHLEBITIS SUPERFICIAL [None]
  - DYSPNOEA [None]
  - ARTHRITIS [None]
